FAERS Safety Report 4403400-9 (Version None)
Quarter: 2004Q3

REPORT INFORMATION
  Report Type: 
  Country: None (occurrence: None)
  Receive Date: 20040715
  Receipt Date: 20040707
  Transmission Date: 20050211
  Serious: Yes (Death)
  Sender: FDA-Public Use
  Company Number: 163-20785-04050532(0)

PATIENT
  Age: 64 Year
  Sex: Male

DRUGS (1)
  1. THALOMID [Suspect]
     Indication: CHRONIC MYELOID LEUKAEMIA
     Dosage: 150-200MG, DAILY, ORAL
     Route: 048
     Dates: start: 20020610, end: 20040401

REACTIONS (1)
  - ACUTE MYELOID LEUKAEMIA [None]
